FAERS Safety Report 9265663 (Version 1)
Quarter: 2013Q2

REPORT INFORMATION
  Report Type: Spontaneous
  Country: GB (occurrence: GB)
  Receive Date: 20130501
  Receipt Date: 20130501
  Transmission Date: 20140414
  Serious: Yes (Hospitalization)
  Sender: FDA-Public Use
  Company Number: GB-TEVA-400462ISR

PATIENT
  Age: 47 Year
  Sex: Male

DRUGS (1)
  1. AMITRIPTYLINE [Suspect]
     Indication: OVERDOSE
     Route: 065

REACTIONS (3)
  - Overdose [Unknown]
  - Chromaturia [Recovering/Resolving]
  - Blood antidiuretic hormone increased [Unknown]
